FAERS Safety Report 6326872-1 (Version None)
Quarter: 2009Q3

REPORT INFORMATION
  Report Type: 
  Country: None (occurrence: None)
  Receive Date: 20090825
  Receipt Date: 20090811
  Transmission Date: 20100115
  Serious: Yes (Hospitalization)
  Sender: FDA-Public Use
  Company Number: FR-ASTRAZENECA-2009SE07513

PATIENT
  Age: 32042 Day
  Sex: Female

DRUGS (2)
  1. TENORMIN [Suspect]
     Route: 048
     Dates: start: 20071215, end: 20071218
  2. FLECAINIDE ACETATE [Suspect]
     Route: 048
     Dates: start: 20071215, end: 20071218

REACTIONS (2)
  - BRADYCARDIA [None]
  - MALAISE [None]
